FAERS Safety Report 7937107-8 (Version None)
Quarter: 2011Q4

REPORT INFORMATION
  Report Type: 
  Country: None (occurrence: None)
  Receive Date: 20111123
  Receipt Date: 20111115
  Transmission Date: 20120403
  Serious: Yes (Hospitalization)
  Sender: FDA-Public Use
  Company Number: CA-JNJFOC-20111107073

PATIENT
  Sex: Female

DRUGS (3)
  1. REMICADE [Suspect]
     Dates: start: 20110816
  2. REMICADE [Suspect]
     Dates: start: 20110926
  3. REMICADE [Suspect]
     Indication: COLITIS ULCERATIVE
     Dates: start: 20110830

REACTIONS (2)
  - CLOSTRIDIAL INFECTION [None]
  - COLITIS [None]
